FAERS Safety Report 6717804-2 (Version None)
Quarter: 2010Q2

REPORT INFORMATION
  Report Type: 
  Country: None (occurrence: None)
  Receive Date: 20100505
  Receipt Date: 20100426
  Transmission Date: 20101027
  Serious: Yes (Other)
  Sender: FDA-Public Use
  Company Number: JPI-P-010518

PATIENT
  Age: 25 Year
  Sex: Male
  Weight: 83.9154 kg

DRUGS (5)
  1. XYREM [Suspect]
     Indication: NARCOLEPSY
     Dosage: 5 GM (2.5 GM, 2 IN 1 D), ORAL, 6 GM (3GM, 2 IN 1 D) 7 GM (3.5 GM, 2 IN 1 D) 6 GM (3 GM, 2 IN 1 D)
     Route: 048
     Dates: start: 20100210, end: 20100101
  2. XYREM [Suspect]
     Indication: NARCOLEPSY
     Dosage: 5 GM (2.5 GM, 2 IN 1 D), ORAL, 6 GM (3GM, 2 IN 1 D) 7 GM (3.5 GM, 2 IN 1 D) 6 GM (3 GM, 2 IN 1 D)
     Route: 048
     Dates: start: 20100101, end: 20100421
  3. XYREM [Suspect]
     Indication: NARCOLEPSY
     Dosage: 5 GM (2.5 GM, 2 IN 1 D), ORAL, 6 GM (3GM, 2 IN 1 D) 7 GM (3.5 GM, 2 IN 1 D) 6 GM (3 GM, 2 IN 1 D)
     Route: 048
     Dates: start: 20100422
  4. METHYLPHENIDATE HCL [Concomitant]
  5. ARMODAFINIL [Concomitant]

REACTIONS (6)
  - BLOOD PRESSURE INCREASED [None]
  - BURNING SENSATION [None]
  - HEART RATE INCREASED [None]
  - HYPOAESTHESIA FACIAL [None]
  - PANCREATITIS [None]
  - WEIGHT DECREASED [None]
